FAERS Safety Report 4323039-3 (Version None)
Quarter: 2004Q1

REPORT INFORMATION
  Report Type: 
  Country: None (occurrence: None)
  Receive Date: 20040325
  Receipt Date: 20040223
  Transmission Date: 20041129
  Serious: Yes (Disabling, Other)
  Sender: FDA-Public Use
  Company Number: US-BRISTOL-MYERS SQUIBB COMPANY-12514329

PATIENT
  Age: 42 Year
  Sex: Male

DRUGS (3)
  1. PRAVACHOL [Suspect]
     Indication: BLOOD CHOLESTEROL INCREASED
     Route: 048
     Dates: start: 20040120, end: 20040130
  2. BENICAR [Concomitant]
  3. IBUPROFEN [Concomitant]

REACTIONS (4)
  - ASTHENIA [None]
  - CARDIAC ENZYMES INCREASED [None]
  - HEPATIC ENZYME INCREASED [None]
  - SERUM SICKNESS [None]
